FAERS Safety Report 7253506 (Version 2)
Quarter: 2014Q1

REPORT INFORMATION
  Report Type: Spontaneous
  Country: US (occurrence: US)
  Receive Date: 20100124
  Receipt Date: 20140327
  Transmission Date: 20141002
  Serious: Yes (Other)
  Sender: FDA-Public Use
  Company Number: US-ALEXION-A200901003

PATIENT
  Age: 23 Year
  Sex: Female
  Weight: 64 kg

DRUGS (6)
  1. SOLIRIS 300MG [Suspect]
     Indication: PAROXYSMAL NOCTURNAL HAEMOGLOBINURIA
     Dosage: 600 MG, QWX4
     Route: 042
     Dates: start: 20091113
  2. OXYCONTIN [Concomitant]
     Dosage: 20 MG, Q12H
     Route: 048
  3. LOVENOX                            /00889602/ [Concomitant]
     Dosage: 60 MG, BID
     Route: 058
  4. COUMADIN                           /00014802/ [Concomitant]
     Dosage: 8 MG, QD
     Route: 048
  5. ALPRAZOLAM [Concomitant]
     Dosage: 0.5 MG, PRN
     Route: 048
  6. OXYCODONE [Concomitant]
     Dosage: 5-10 MG Q4H
     Route: 048

REACTIONS (6)
  - Myelodysplastic syndrome [Unknown]
  - Thrombocytopenia [Unknown]
  - Muscle spasms [Recovered/Resolved]
  - Back pain [Recovered/Resolved]
  - Fatigue [Unknown]
  - Chromaturia [Unknown]
